FAERS Safety Report 9227444 (Version 1)
Quarter: 2013Q2

REPORT INFORMATION
  Report Type: Spontaneous
  Country: AR (occurrence: AR)
  Receive Date: 20130412
  Receipt Date: 20130412
  Transmission Date: 20140414
  Serious: Yes (Other)
  Sender: FDA-Public Use
  Company Number: AR-AMGEN-ARGSP2013025614

PATIENT
  Sex: Female

DRUGS (1)
  1. ENBREL [Suspect]
     Indication: RHEUMATOID ARTHRITIS
     Dosage: 50 MG, WEEKLY
     Dates: start: 20120228

REACTIONS (6)
  - Ankle fracture [Unknown]
  - Decreased immune responsiveness [Recovering/Resolving]
  - Local swelling [Recovering/Resolving]
  - Pyrexia [Recovering/Resolving]
  - Application site erythema [Recovered/Resolved]
  - Application site pruritus [Unknown]
